FAERS Safety Report 5932379-3 (Version None)
Quarter: 2008Q4

REPORT INFORMATION
  Report Type: 
  Country: None (occurrence: None)
  Receive Date: 20081027
  Receipt Date: 20081027
  Transmission Date: 20090506
  Serious: Yes (Other)
  Sender: FDA-Public Use
  Company Number: None

PATIENT
  Age: 44 Year
  Sex: Female
  Weight: 23.1334 kg

DRUGS (1)
  1. VISTABEL [Suspect]
     Indication: SKIN COSMETIC PROCEDURE
     Dosage: 50U 1 IM
     Route: 030

REACTIONS (3)
  - DYSPNOEA [None]
  - HYPERSENSITIVITY [None]
  - RASH [None]
